FAERS Safety Report 18987787 (Version 2)
Quarter: 2021Q2

REPORT INFORMATION
  Report Type: Spontaneous
  Country: US (occurrence: US)
  Receive Date: 20210309
  Receipt Date: 20210414
  Transmission Date: 20210717
  Serious: No
  Sender: FDA-Public Use
  Company Number: US-ASTRAZENECA-2021A054020

PATIENT

DRUGS (2)
  1. IBRANCE [Suspect]
     Active Substance: PALBOCICLIB
     Indication: BREAST CANCER
     Dosage: 100 MG 1 TABLET DAILY 21 DAYS, OFF 7 DAYS.`
     Route: 048
     Dates: start: 20201211
  2. FASLODEX [Suspect]
     Active Substance: FULVESTRANT
     Indication: BREAST CANCER
     Route: 030

REACTIONS (7)
  - Injection site pain [Unknown]
  - Product dose omission issue [Unknown]
  - Insurance issue [Unknown]
  - Fatigue [Unknown]
  - Injection site nodule [Unknown]
  - Epistaxis [Not Recovered/Not Resolved]
  - Rhinorrhoea [Unknown]
